FAERS Safety Report 14585962 (Version 2)
Quarter: 2018Q2

REPORT INFORMATION
  Report Type: Spontaneous
  Country: US (occurrence: US)
  Receive Date: 20180301
  Receipt Date: 20180430
  Transmission Date: 20180711
  Serious: Yes (Death, Hospitalization, Other)
  Sender: FDA-Public Use
  Company Number: US-009507513-1802USA012705

PATIENT
  Age: 20 Year
  Sex: Male

DRUGS (7)
  1. CISPLATIN. [Suspect]
     Active Substance: CISPLATIN
     Indication: NUT MIDLINE CARCINOMA
     Dosage: UNK
  2. DOXORUBICIN HYDROCHLORIDE. [Suspect]
     Active Substance: DOXORUBICIN HYDROCHLORIDE
     Indication: NUT MIDLINE CARCINOMA
     Dosage: UNK
  3. KEYTRUDA [Suspect]
     Active Substance: PEMBROLIZUMAB
     Indication: NUT MIDLINE CARCINOMA
     Dosage: UNK
     Dates: start: 201801
  4. TAXOL [Suspect]
     Active Substance: PACLITAXEL
     Indication: NUT MIDLINE CARCINOMA
     Dosage: UNK
  5. VINCRISTINE [Suspect]
     Active Substance: VINCRISTINE
     Indication: NUT MIDLINE CARCINOMA
     Dosage: UNK
  6. ZOLINZA [Suspect]
     Active Substance: VORINOSTAT
     Indication: NUT MIDLINE CARCINOMA
     Dosage: UNK
  7. IFOSFAMIDE. [Suspect]
     Active Substance: IFOSFAMIDE
     Indication: NUT MIDLINE CARCINOMA
     Dosage: UNK

REACTIONS (6)
  - Hepatic function abnormal [Unknown]
  - Product use in unapproved indication [Unknown]
  - Drug ineffective for unapproved indication [Unknown]
  - Death [Fatal]
  - Malignant neoplasm progression [Unknown]
  - Critical illness [Unknown]

NARRATIVE: CASE EVENT DATE: 2018
